FAERS Safety Report 8260388-0 (Version None)
Quarter: 2012Q2

REPORT INFORMATION
  Report Type: 
  Country: None (occurrence: None)
  Receive Date: 20120404
  Receipt Date: 20120328
  Transmission Date: 20120825
  Serious: Yes (Hospitalization)
  Sender: FDA-Public Use
  Company Number: NL-AMGEN-NLDCT2012018443

PATIENT
  Age: 65 Year
  Sex: Male
  Weight: 61 kg

DRUGS (7)
  1. DOXORUBICIN HCL [Concomitant]
     Indication: B-CELL LYMPHOMA
     Dosage: 85 MG, UNK
     Route: 042
     Dates: start: 20111020
  2. AUGMENTIN '125' [Concomitant]
     Indication: PYREXIA
     Dosage: UNK
     Route: 048
     Dates: start: 20111019, end: 20111021
  3. NEULASTIM [Suspect]
     Dosage: UNK
     Route: 058
     Dates: start: 20111021
  4. RITUXIMAB [Concomitant]
     Indication: B-CELL LYMPHOMA
     Dosage: 640 MG, UNK
     Route: 042
     Dates: start: 20111020
  5. VINCRISTINE [Concomitant]
     Indication: B-CELL LYMPHOMA
     Dosage: 2 MG, UNK
     Route: 042
     Dates: start: 20111020
  6. CYCLOPHOSPHAMIDE [Concomitant]
     Indication: B-CELL LYMPHOMA
     Dosage: UNK
     Dates: start: 20111020
  7. PREDNISONE TAB [Concomitant]
     Indication: B-CELL LYMPHOMA
     Dosage: UNK
     Route: 048
     Dates: start: 20111014

REACTIONS (2)
  - INFECTION [None]
  - GRANULOCYTOPENIA [None]
